FAERS Safety Report 9526280 (Version 1)
Quarter: 2013Q3

REPORT INFORMATION
  Report Type: Spontaneous
  Country: US (occurrence: US)
  Receive Date: 20130916
  Receipt Date: 20130916
  Transmission Date: 20140515
  Serious: Yes (Hospitalization, Disabling, Other)
  Sender: FDA-Public Use
  Company Number: US-TEVA-431966USA

PATIENT
  Sex: Male

DRUGS (3)
  1. PROPOXYPHENE NAPSYLATE AND ACETAMINOPHEN [Suspect]
  2. DARVOCET [Suspect]
  3. DARVON [Suspect]

REACTIONS (3)
  - Cardiac disorder [Unknown]
  - Nervous system disorder [Unknown]
  - Movement disorder [Unknown]
